FAERS Safety Report 8524961-4 (Version None)
Quarter: 2012Q3

REPORT INFORMATION
  Report Type: 
  Country: None (occurrence: None)
  Receive Date: 20120710
  Receipt Date: 20120628
  Transmission Date: 20120928
  Serious: Yes (Hospitalization)
  Sender: FDA-Public Use
  Company Number: JP-006159

PATIENT
  Age: 32 Year
  Sex: Female

DRUGS (3)
  1. MENOTROPINS [Suspect]
     Indication: OVULATION INDUCTION
  2. CLOMIPHENE CITRATE [Suspect]
     Indication: OVULATION INDUCTION
  3. CHORIONIC GONADOTROPIN [Suspect]
     Indication: OVULATION INDUCTION

REACTIONS (6)
  - GENITAL HAEMORRHAGE [None]
  - MATERNAL EXPOSURE BEFORE PREGNANCY [None]
  - MALIGNANT HYDATIDIFORM MOLE [None]
  - ABORTION INDUCED [None]
  - TWIN PREGNANCY [None]
  - METASTASES TO LUNG [None]
